FAERS Safety Report 16821363 (Version 1)
Quarter: 2019Q3

REPORT INFORMATION
  Report Type: Spontaneous
  Country: DE (occurrence: DE)
  Receive Date: 20190918
  Receipt Date: 20190918
  Transmission Date: 20191005
  Serious: Yes (Life-Threatening, Hospitalization)
  Sender: FDA-Public Use
  Company Number: PHHY2019DE214357

PATIENT
  Age: 55 Year

DRUGS (2)
  1. TRAMETINIB [Suspect]
     Active Substance: TRAMETINIB
     Indication: MALIGNANT MELANOMA
     Dosage: UNK
     Route: 065
     Dates: start: 2019
  2. DABRAFENIB [Suspect]
     Active Substance: DABRAFENIB
     Indication: MALIGNANT MELANOMA
     Dosage: UNK
     Route: 065
     Dates: start: 2019

REACTIONS (10)
  - Interleukin-2 receptor increased [Unknown]
  - Diarrhoea [Unknown]
  - Haemophagocytic lymphohistiocytosis [Unknown]
  - Pancytopenia [Unknown]
  - Pyrexia [Unknown]
  - Hypotension [Unknown]
  - Serum ferritin increased [Unknown]
  - Splenomegaly [Unknown]
  - Hypertriglyceridaemia [Unknown]
  - Confusional state [Unknown]
